FAERS Safety Report 22094378 (Version 1)
Quarter: 2023Q1

REPORT INFORMATION
  Report Type: Spontaneous
  Country: US (occurrence: US)
  Receive Date: 20230314
  Receipt Date: 20230314
  Transmission Date: 20230418
  Serious: Yes (Hospitalization, Disabling, Other)
  Sender: FDA-Public Use
  Company Number: US-BoehringerIngelheim-2023-BI-223693

PATIENT
  Age: 77 Year
  Sex: Male
  Weight: 72.5 kg

DRUGS (9)
  1. PRADAXA [Suspect]
     Active Substance: DABIGATRAN ETEXILATE MESYLATE
     Indication: Anticoagulant therapy
  2. PRADAXA [Suspect]
     Active Substance: DABIGATRAN ETEXILATE MESYLATE
     Indication: Atrial fibrillation
     Dates: start: 20221010
  3. MULTAQ [Suspect]
     Active Substance: DRONEDARONE
     Indication: Arrhythmia
     Dates: start: 20221025
  4. ALLUPURINOL [Concomitant]
     Indication: Cardiac amyloidosis
  5. TAFAMIDIS MEGLUMINE (VYNDAQEL) [Concomitant]
     Indication: Cardiac amyloidosis
  6. SIMVASTATIN [Concomitant]
     Active Substance: SIMVASTATIN
     Indication: Product used for unknown indication
  7. LUMIGAN [Concomitant]
     Active Substance: BIMATOPROST
     Indication: Product used for unknown indication
  8. LISINOPRIL [Concomitant]
     Active Substance: LISINOPRIL
     Indication: Product used for unknown indication
  9. TIMOLOL MALEATE [Concomitant]
     Active Substance: TIMOLOL MALEATE
     Indication: Product used for unknown indication

REACTIONS (9)
  - Micturition disorder [Unknown]
  - Palpitations [Unknown]
  - Headache [Unknown]
  - Weight increased [Unknown]
  - Renal impairment [Recovered/Resolved]
  - Feeling abnormal [Unknown]
  - Sleep disorder [Unknown]
  - Fluid retention [Unknown]
  - Drug interaction [Unknown]

NARRATIVE: CASE EVENT DATE: 20221023
